FAERS Safety Report 16747826 (Version 1)
Quarter: 2019Q3

REPORT INFORMATION
  Report Type: Spontaneous
  Country: FR (occurrence: FR)
  Receive Date: 20190827
  Receipt Date: 20190827
  Transmission Date: 20191005
  Serious: Yes (Other)
  Sender: FDA-Public Use
  Company Number: FR-MYLANLABS-2019M1079784

PATIENT
  Age: 25 Year
  Sex: Female

DRUGS (3)
  1. BUPIVACAINE MYLAN [Suspect]
     Active Substance: BUPIVACAINE
     Indication: CAESAREAN SECTION
     Dosage: 12 MILLIGRAM (VOLUME OF ADMINISTERED BUPIVACAINE: 2 ML)
  2. SUFENTANIL [Concomitant]
     Active Substance: SUFENTANIL
     Dosage: UNK
  3. MORPHINE [Concomitant]
     Active Substance: MORPHINE
     Dosage: UNK

REACTIONS (2)
  - Maternal exposure during delivery [Recovered/Resolved]
  - Drug ineffective [Unknown]

NARRATIVE: CASE EVENT DATE: 20190819
